FAERS Safety Report 16214079 (Version 4)
Quarter: 2021Q1

REPORT INFORMATION
  Report Type: Spontaneous
  Country: US (occurrence: US)
  Receive Date: 20190418
  Receipt Date: 20210125
  Transmission Date: 20210419
  Serious: Yes (Other)
  Sender: FDA-Public Use
  Company Number: US-GILEAD-2019-0402864

PATIENT
  Age: 47 Year
  Sex: Male
  Weight: 86.62 kg

DRUGS (16)
  1. TRIUMEQ [Concomitant]
     Active Substance: ABACAVIR SULFATE\DOLUTEGRAVIR SODIUM\LAMIVUDINE
  2. LOSARTAN. [Concomitant]
     Active Substance: LOSARTAN
  3. TRUVADA [Suspect]
     Active Substance: EMTRICITABINE\TENOFOVIR DISOPROXIL FUMARATE
     Indication: HIV INFECTION
     Dosage: UNK
     Route: 048
     Dates: start: 200401, end: 200612
  4. DIFLUCAN [Concomitant]
     Active Substance: FLUCONAZOLE
  5. VIAGRA [Concomitant]
     Active Substance: SILDENAFIL CITRATE
  6. SUSTIVA [Concomitant]
     Active Substance: EFAVIRENZ
  7. TYLENOL [Concomitant]
     Active Substance: ACETAMINOPHEN
  8. TRICOR [ADENOSINE] [Concomitant]
     Active Substance: ADENOSINE
  9. KETOCONAZOLE. [Concomitant]
     Active Substance: KETOCONAZOLE
  10. TRUVADA [Suspect]
     Active Substance: EMTRICITABINE\TENOFOVIR DISOPROXIL FUMARATE
     Dosage: UNK
     Route: 048
     Dates: start: 200408, end: 2006
  11. ATRIPLA [Suspect]
     Active Substance: EFAVIRENZ\EMTRICITABINE\TENOFOVIR DISOPROXIL FUMARATE
     Indication: HIV INFECTION
     Dosage: UNK
     Route: 048
     Dates: start: 200602, end: 20121224
  12. ACETAMINOPHEN. [Concomitant]
     Active Substance: ACETAMINOPHEN
  13. PREDNISONE. [Concomitant]
     Active Substance: PREDNISONE
  14. FENOFIBRATE. [Concomitant]
     Active Substance: FENOFIBRATE
  15. ASPIRIN [ACETYLSALICYLIC ACID] [Concomitant]
     Active Substance: ASPIRIN
  16. LOVAZA [Concomitant]
     Active Substance: OMEGA-3-ACID ETHYL ESTERS

REACTIONS (10)
  - Depression [Not Recovered/Not Resolved]
  - Insomnia [Not Recovered/Not Resolved]
  - Anxiety [Not Recovered/Not Resolved]
  - Pain [Not Recovered/Not Resolved]
  - Anhedonia [Not Recovered/Not Resolved]
  - Economic problem [Not Recovered/Not Resolved]
  - Chronic kidney disease [Not Recovered/Not Resolved]
  - Decreased activity [Not Recovered/Not Resolved]
  - Inflammation [Not Recovered/Not Resolved]
  - Emotional distress [Not Recovered/Not Resolved]

NARRATIVE: CASE EVENT DATE: 2004
